FAERS Safety Report 12135682 (Version 1)
Quarter: 2016Q1

REPORT INFORMATION
  Report Type: Spontaneous
  Country: US (occurrence: US)
  Receive Date: 20160302
  Receipt Date: 20160302
  Transmission Date: 20160526
  Serious: No
  Sender: FDA-Public Use
  Company Number: US-JNJFOC-20160114365

PATIENT
  Age: 22 Year
  Sex: Female

DRUGS (2)
  1. MONONESSA [Suspect]
     Active Substance: ETHINYL ESTRADIOL\NORGESTIMATE
     Indication: CONTRACEPTION
     Dosage: ETHINYL ESTRADIOL 0.035 MG /NORGESTIMATE 0.25 MG
     Route: 048
     Dates: start: 201502
  2. CAL CITRATE PLUS VITAMIN D [Concomitant]

REACTIONS (4)
  - Fatigue [Unknown]
  - Nausea [Unknown]
  - Muscle spasms [Unknown]
  - Diarrhoea [Unknown]

NARRATIVE: CASE EVENT DATE: 20151225
